FAERS Safety Report 19242633 (Version 2)
Quarter: 2021Q2

REPORT INFORMATION
  Report Type: Spontaneous
  Country: US (occurrence: US)
  Receive Date: 20210511
  Receipt Date: 20210614
  Transmission Date: 20210717
  Serious: No
  Sender: FDA-Public Use
  Company Number: US-GILEAD-2021-0527515

PATIENT
  Sex: Female

DRUGS (10)
  1. IRON [Concomitant]
     Active Substance: IRON
  2. LACTOSE [Concomitant]
     Active Substance: LACTOSE
  3. ATENOLOL. [Concomitant]
     Active Substance: ATENOLOL
  4. CAFFEINE. [Concomitant]
     Active Substance: CAFFEINE
  5. METFORMIN HCL [Concomitant]
     Active Substance: METFORMIN HYDROCHLORIDE
  6. EPCLUSA [Suspect]
     Active Substance: SOFOSBUVIR\VELPATASVIR
     Indication: CHRONIC HEPATITIS C
     Dosage: TAKE 1 TABLET BY MOUTH ONCE DAILY
     Route: 048
     Dates: start: 202101
  7. MULTI VITAMIN ONE A DAY [Concomitant]
  8. OXYCODONE HYDROCHLORIDE. [Concomitant]
     Active Substance: OXYCODONE HYDROCHLORIDE
  9. LIDOCAINE. [Concomitant]
     Active Substance: LIDOCAINE
  10. NEXIUM I.V. [Concomitant]
     Active Substance: ESOMEPRAZOLE SODIUM

REACTIONS (1)
  - Intentional dose omission [Recovered/Resolved]
